FAERS Safety Report 17362719 (Version 2)
Quarter: 2020Q1

REPORT INFORMATION
  Report Type: Spontaneous
  Country: US (occurrence: US)
  Receive Date: 20200203
  Receipt Date: 20200205
  Transmission Date: 20200409
  Serious: Yes (Death, Life-Threatening, Hospitalization, Other)
  Sender: FDA-Public Use
  Company Number: US-PFIZER INC-2020039728

PATIENT
  Age: 5 Month
  Sex: Male

DRUGS (1)
  1. METRONIDAZOLE. [Suspect]
     Active Substance: METRONIDAZOLE
     Indication: EVIDENCE BASED TREATMENT
     Dosage: UNK (10 DAY COURSE TO COMPLETE AT HOME)
     Route: 048

REACTIONS (4)
  - Treatment failure [Fatal]
  - Pseudomembranous colitis [Fatal]
  - Respiratory distress [Fatal]
  - Clostridium difficile infection [Fatal]
